FAERS Safety Report 10588355 (Version 2)
Quarter: 2014Q4

REPORT INFORMATION
  Report Type: Spontaneous
  Country: BR (occurrence: BR)
  Receive Date: 20141117
  Receipt Date: 20141126
  Transmission Date: 20150529
  Serious: Yes (Other)
  Sender: FDA-Public Use
  Company Number: BR-SA-2014SA153905

PATIENT
  Age: 0 Day
  Sex: Male
  Weight: 3.05 kg

DRUGS (2)
  1. CLEXANE [Suspect]
     Active Substance: ENOXAPARIN SODIUM
     Indication: MATERNAL EXPOSURE TIMING UNSPECIFIED
     Route: 064
     Dates: end: 20140911
  2. AAS [Suspect]
     Active Substance: ASPIRIN
     Indication: MATERNAL EXPOSURE TIMING UNSPECIFIED
     Route: 064

REACTIONS (1)
  - Jaundice [Recovered/Resolved]
